FAERS Safety Report 10171192 (Version 2)
Quarter: 2014Q3

REPORT INFORMATION
  Report Type: Report from Study
  Country: DE (occurrence: None)
  Receive Date: 20140512
  Receipt Date: 20140708
  Transmission Date: 20150326
  Serious: Yes (Life-Threatening, Hospitalization)
  Sender: FDA-Public Use
  Company Number: 2014118765

PATIENT
  Age: 60 Year
  Sex: Female
  Weight: 55 kg

DRUGS (6)
  1. DALTEPARIN [Suspect]
     Active Substance: DALTEPARIN
     Indication: THROMBOPHLEBITIS
     Route: 058
     Dates: start: 20140407
  2. ACETYLCYSTEINE (ACETYLCYSTEINE) [Concomitant]
  3. CRIZOTINIB [Suspect]
     Active Substance: CRIZOTINIB
     Indication: NON-SMALL CELL LUNG CANCER
     Dosage: 250 MG, 2X/DAY, ORAL
     Route: 048
     Dates: start: 20130626, end: 20140430
  4. PEMETREXED [Suspect]
     Active Substance: PEMETREXED
     Indication: NON-SMALL CELL LUNG CANCER
     Dosage: 780 MG, (500MG/M2);(DAY 1 OF 21 DAY CYCLE)
     Route: 042
     Dates: start: 20121126, end: 20130311
  5. CARBOPLATIN. [Suspect]
     Active Substance: CARBOPLATIN
     Indication: NON-SMALL CELL LUNG CANCER
     Dosage: (DAY 1 OF 21 DAY CYCLE); AUC 6
     Dates: start: 20121126, end: 20130311
  6. METOCLOPRAMIDE (METOCLOPRAMIDE) [Concomitant]
     Active Substance: METOCLOPRAMIDE

REACTIONS (2)
  - Subarachnoid haemorrhage [None]
  - Ruptured cerebral aneurysm [None]
